FAERS Safety Report 12962599 (Version 2)
Quarter: 2016Q4

REPORT INFORMATION
  Report Type: Spontaneous
  Country: US (occurrence: US)
  Receive Date: 20161121
  Receipt Date: 20161207
  Transmission Date: 20170207
  Serious: No
  Sender: FDA-Public Use
  Company Number: US-GILEAD-2016-0243492

PATIENT
  Age: 58 Year
  Sex: Male
  Weight: 98.41 kg

DRUGS (5)
  1. LISINOPRIL. [Concomitant]
     Active Substance: LISINOPRIL
     Indication: BLOOD PRESSURE MEASUREMENT
     Dosage: 20 MG, UNK
     Route: 048
  2. HYDROXYZINE [Concomitant]
     Active Substance: HYDROXYZINE\HYDROXYZINE HYDROCHLORIDE
     Indication: SOMNOLENCE
  3. HARVONI [Suspect]
     Active Substance: LEDIPASVIR\SOFOSBUVIR
     Indication: HEPATITIS C
     Dosage: UNK
     Route: 048
  4. HYDROXYZINE [Concomitant]
     Active Substance: HYDROXYZINE\HYDROXYZINE HYDROCHLORIDE
     Indication: PRURITUS
     Dosage: 50 MG, UNK
     Route: 048
  5. CELEXA [Concomitant]
     Active Substance: CITALOPRAM HYDROBROMIDE
     Indication: DEPRESSION
     Dosage: 10 MG, UNK
     Route: 048

REACTIONS (3)
  - Throat tightness [Recovered/Resolved]
  - Dysphagia [Recovered/Resolved]
  - Product difficult to swallow [Recovered/Resolved]

NARRATIVE: CASE EVENT DATE: 20161110
